FAERS Safety Report 5002598-1 (Version None)
Quarter: 2006Q2

REPORT INFORMATION
  Report Type: 
  Country: None (occurrence: None)
  Receive Date: 20060515
  Receipt Date: 20050928
  Transmission Date: 20061013
  Serious: Yes (Hospitalization)
  Sender: FDA-Public Use
  Company Number: US-MERCK-0509USA04811

PATIENT
  Age: 43 Year
  Sex: Female
  Weight: 56 kg

DRUGS (1)
  1. VIOXX [Suspect]
     Indication: OSTEOARTHRITIS
     Route: 048
     Dates: start: 20000201, end: 20040930

REACTIONS (29)
  - ABDOMINAL PAIN UPPER [None]
  - ANXIETY [None]
  - AORTIC VALVE INCOMPETENCE [None]
  - BACK PAIN [None]
  - BEREAVEMENT REACTION [None]
  - BILE DUCT STONE [None]
  - BRONCHITIS [None]
  - CARDIAC VALVE DISEASE [None]
  - CHEST PAIN [None]
  - CHOLECYSTITIS [None]
  - COAGULATION TIME PROLONGED [None]
  - CONSTIPATION [None]
  - DEHYDRATION [None]
  - DEPRESSION [None]
  - DYSPNOEA [None]
  - FATIGUE [None]
  - GENERALISED ANXIETY DISORDER [None]
  - GINGIVAL BLEEDING [None]
  - HOT FLUSH [None]
  - HYPERTENSION [None]
  - INSOMNIA [None]
  - LOBAR PNEUMONIA [None]
  - MYOCARDIAL INFARCTION [None]
  - PEPTIC ULCER [None]
  - RECTAL HAEMORRHAGE [None]
  - SEPSIS [None]
  - SINUSITIS [None]
  - SYNCOPE [None]
  - TONSILLITIS [None]
